FAERS Safety Report 12366942 (Version 1)
Quarter: 2016Q2

REPORT INFORMATION
  Report Type: Spontaneous
  Country: GB (occurrence: GB)
  Receive Date: 20160513
  Receipt Date: 20160513
  Transmission Date: 20160815
  Serious: Yes (Other)
  Sender: FDA-Public Use
  Company Number: GB-PFIZER INC-2016145089

PATIENT
  Age: 40 Year
  Sex: Female
  Weight: 63.8 kg

DRUGS (2)
  1. CHAMPIX [Suspect]
     Active Substance: VARENICLINE TARTRATE
     Indication: SMOKING CESSATION THERAPY
     Dosage: 1 MG, 2X/DAY
     Dates: start: 201512, end: 201601
  2. PAROXETINE. [Concomitant]
     Active Substance: PAROXETINE
     Indication: STRESS
     Dosage: 20 MG, 1X/DAY

REACTIONS (3)
  - Myopia [Unknown]
  - Vision blurred [Unknown]
  - Diffuse lamellar keratitis [Unknown]

NARRATIVE: CASE EVENT DATE: 201601
